FAERS Safety Report 5474690-9 (Version None)
Quarter: 2007Q3

REPORT INFORMATION
  Report Type: 
  Country: None (occurrence: None)
  Receive Date: 20070928
  Receipt Date: 20070922
  Transmission Date: 20080115
  Serious: Yes (Hospitalization)
  Sender: FDA-Public Use
  Company Number: CHPA2007CA09947

PATIENT
  Age: 7 Month
  Sex: Female
  Weight: 9.1 kg

DRUGS (1)
  1. OTRIVIN NASAL DROPS [Suspect]
     Dosage: ONCE/SINGLE, VIA FALSA
     Dates: start: 20070918, end: 20070918

REACTIONS (3)
  - INCORRECT ROUTE OF DRUG ADMINISTRATION [None]
  - LOSS OF CONSCIOUSNESS [None]
  - SOMNOLENCE [None]
